FAERS Safety Report 4533052-9 (Version None)
Quarter: 2004Q4

REPORT INFORMATION
  Report Type: 
  Country: None (occurrence: None)
  Receive Date: 20041221
  Receipt Date: 20041215
  Transmission Date: 20050328
  Serious: Yes (Hospitalization)
  Sender: FDA-Public Use
  Company Number: 200422225GDDC

PATIENT
  Age: 60 Year
  Sex: Female

DRUGS (6)
  1. LANTUS [Suspect]
     Indication: DIABETES MELLITUS
     Dosage: DOSE UNIT: UNITS
     Route: 058
     Dates: start: 20040908
  2. LOPRESSOR [Concomitant]
     Indication: HYPERTENSION
     Route: 048
  3. NUTRINEAL PD4 [Concomitant]
     Dates: end: 20041001
  4. ASPIRIN [Concomitant]
     Route: 048
  5. PLAVIX [Concomitant]
     Route: 048
  6. HUMALOG [Concomitant]
     Indication: DIABETES MELLITUS
     Dosage: DOSE UNIT: UNITS
     Route: 058

REACTIONS (4)
  - COUGH [None]
  - HYPERSENSITIVITY [None]
  - PERITONEAL DIALYSIS [None]
  - PLEURAL EFFUSION [None]
